FAERS Safety Report 10372886 (Version 3)
Quarter: 2014Q3

REPORT INFORMATION
  Report Type: Spontaneous
  Country: CA (occurrence: CA)
  Receive Date: 20140808
  Receipt Date: 20140826
  Transmission Date: 20150326
  Serious: Yes (Hospitalization, Other)
  Sender: FDA-Public Use
  Company Number: CA-ROCHE-1445985

PATIENT
  Age: 50 Year
  Sex: Female

DRUGS (1)
  1. LUCENTIS [Suspect]
     Active Substance: RANIBIZUMAB
     Indication: RETINAL VEIN OCCLUSION
     Route: 050
     Dates: start: 201404

REACTIONS (2)
  - Movement disorder [Unknown]
  - Migraine [Not Recovered/Not Resolved]

NARRATIVE: CASE EVENT DATE: 201407
